FAERS Safety Report 5390226-5 (Version None)
Quarter: 2007Q3

REPORT INFORMATION
  Report Type: 
  Country: None (occurrence: None)
  Receive Date: 20070718
  Receipt Date: 20070710
  Transmission Date: 20080115
  Serious: Yes (Disabling)
  Sender: FDA-Public Use
  Company Number: JP-ASTRAZENECA-2007AP04204

PATIENT
  Age: 58 Year
  Sex: Female

DRUGS (4)
  1. OMEPRAZOLE [Suspect]
     Indication: GASTRIC ULCER
     Route: 048
     Dates: start: 20070410, end: 20070703
  2. AMLODIPINE BESYLATE [Suspect]
     Route: 048
     Dates: start: 20061201, end: 20070410
  3. AMLODIPINE BESYLATE [Suspect]
     Route: 048
     Dates: start: 20070410, end: 20070708
  4. FLUITRAN [Suspect]
     Route: 048
     Dates: start: 20061203, end: 20070703

REACTIONS (1)
  - MUSCLE DISORDER [None]
